FAERS Safety Report 8487746-3 (Version None)
Quarter: 2012Q3

REPORT INFORMATION
  Report Type: 
  Country: None (occurrence: None)
  Receive Date: 20120705
  Receipt Date: 20120626
  Transmission Date: 20120928
  Serious: Yes (Hospitalization)
  Sender: FDA-Public Use
  Company Number: US-BAYER-2012-022062

PATIENT
  Age: 31 Year
  Sex: Female
  Weight: 75.283 kg

DRUGS (12)
  1. WOMEN'S MULTI [Concomitant]
     Indication: SUPPLEMENTATION THERAPY
     Dosage: DAILY
     Route: 048
  2. CALCIUM MAGNESIUM [Concomitant]
     Indication: SUPPLEMENTATION THERAPY
     Dosage: 1 TABLET, HS
     Route: 048
  3. YAZ [Suspect]
     Indication: CONTRACEPTION
     Dosage: UNK
     Dates: start: 20081101, end: 20100801
  4. DROSPIRENONE AND ETHINYL ESTRADIOL [Suspect]
     Indication: CONTRACEPTION
     Dosage: UNK
     Dates: start: 20100801, end: 20110801
  5. LORATADINE [Concomitant]
  6. THERAGRAN-M [Concomitant]
  7. CALCIUM MAGNESIUM ZINC [Concomitant]
     Indication: SUPPLEMENTATION THERAPY
  8. ALBUTEROL [Concomitant]
     Indication: DYSPNOEA
     Dosage: 90MCG/PUFF Q4HR AS NEEDED
  9. IBUPROFEN [Concomitant]
     Indication: PAIN
     Dosage: 400 MG, EVERY 8 HRS AS NEEDED
     Route: 048
  10. PROVENTIL [Concomitant]
     Indication: ASTHMA
     Dosage: UNK
     Dates: start: 19870101
  11. CLARITIN [Concomitant]
     Indication: MULTIPLE ALLERGIES
     Dosage: 10 MG, DAILY AS NEEDED
     Route: 048
  12. ACETAMINOPHEN [Concomitant]
     Dosage: 650 MG, PRN

REACTIONS (9)
  - INJURY [None]
  - PAIN [None]
  - PULMONARY EMBOLISM [None]
  - GENERAL PHYSICAL HEALTH DETERIORATION [None]
  - ANXIETY [None]
  - PAIN IN EXTREMITY [None]
  - EMOTIONAL DISTRESS [None]
  - DYSPNOEA [None]
  - DEEP VEIN THROMBOSIS [None]
